FAERS Safety Report 15295662 (Version 1)
Quarter: 2018Q3

REPORT INFORMATION
  Report Type: Spontaneous
  Country: JP (occurrence: JP)
  Receive Date: 20180820
  Receipt Date: 20180820
  Transmission Date: 20181010
  Serious: Yes (Other)
  Sender: FDA-Public Use
  Company Number: JP-GLAXOSMITHKLINE-JP2018JPN148272

PATIENT
  Sex: Female

DRUGS (1)
  1. FLUTIDE [Suspect]
     Active Substance: FLUTICASONE PROPIONATE
     Dosage: UNK, BID(MORNING,NIGHT)
     Route: 055

REACTIONS (3)
  - Oropharyngeal discomfort [Unknown]
  - Gastrointestinal fungal infection [Unknown]
  - Dysgeusia [Unknown]
